FAERS Safety Report 8586779-6 (Version None)
Quarter: 2012Q3

REPORT INFORMATION
  Report Type: 
  Country: None (occurrence: None)
  Receive Date: 20120810
  Receipt Date: 20120806
  Transmission Date: 20120928
  Serious: Yes (Hospitalization, Other)
  Sender: FDA-Public Use
  Company Number: CO-ELI_LILLY_AND_COMPANY-CO201206005498

PATIENT
  Age: 63 Year
  Sex: Male

DRUGS (6)
  1. CALCITONIN SALMON [Concomitant]
  2. CALCIUM [Concomitant]
  3. CALCITRIOL [Concomitant]
  4. PREDNISOLONE [Concomitant]
  5. FORTEO [Suspect]
     Indication: OSTEOPOROSIS
     Dosage: 20 UNK, UNK
     Route: 058
     Dates: start: 20120606
  6. AZATHIOPRINE SODIUM [Concomitant]

REACTIONS (3)
  - MOVEMENT DISORDER [None]
  - LUNG TRANSPLANT [None]
  - DIZZINESS [None]
